FAERS Safety Report 12645752 (Version 1)
Quarter: 2016Q3

REPORT INFORMATION
  Report Type: Spontaneous
  Country: CZ (occurrence: CZ)
  Receive Date: 20160811
  Receipt Date: 20160811
  Transmission Date: 20161109
  Serious: Yes (Other)
  Sender: FDA-Public Use
  Company Number: CZ-ALLERGAN-1665546US

PATIENT
  Age: 37 Year
  Sex: Female

DRUGS (1)
  1. LEVOSERT [Suspect]
     Active Substance: LEVONORGESTREL
     Indication: CONTRACEPTION
     Dosage: 52 MG
     Route: 015
     Dates: start: 20150817, end: 20160804

REACTIONS (2)
  - Anaemia [Recovered/Resolved]
  - Menometrorrhagia [Recovered/Resolved]

NARRATIVE: CASE EVENT DATE: 20151017
